FAERS Safety Report 14580886 (Version 1)
Quarter: 2018Q1

REPORT INFORMATION
  Report Type: Spontaneous
  Country: DE (occurrence: DE)
  Receive Date: 20180228
  Receipt Date: 20180228
  Transmission Date: 20180509
  Serious: Yes (Other)
  Sender: FDA-Public Use
  Company Number: DE-HORMOSAN-2018-01313

PATIENT
  Sex: Female

DRUGS (10)
  1. L-THYROXIN                         /00068001/ [Concomitant]
     Active Substance: LEVOTHYROXINE
     Dosage: 50 UNK, UNK
     Route: 065
  2. QUETIAPIN-HORMOSAN 400 MG RETARDTABLETTEN [Suspect]
     Active Substance: QUETIAPINE FUMARATE
     Indication: NEUROLOGICAL SYMPTOM
     Dosage: 400 MG, QD (IN THE EVENING)
     Route: 048
  3. QUETIAPIN-HORMOSAN 300 MG RETARDTABLETTEN [Suspect]
     Active Substance: QUETIAPINE FUMARATE
     Indication: NEUROLOGICAL SYMPTOM
     Dosage: 300 MG, QD (IN THE EVENING)
     Route: 048
     Dates: start: 201606
  4. QUETIAPIN-HORMOSAN 200 MG RETARDTABLETTEN [Suspect]
     Active Substance: QUETIAPINE FUMARATE
     Indication: NEUROLOGICAL SYMPTOM
     Dosage: 200 MG, QD (IN THE EVENING)
     Route: 048
  5. QUETIAPIN-HORMOSAN 25 MG FILMTABLETTEN [Suspect]
     Active Substance: QUETIAPINE
     Indication: NEUROLOGICAL SYMPTOM
     Dosage: 12.5 MG (0.5 TABLET), QD (IN THE EVENING)
     Route: 048
  6. CANDESARTAN. [Concomitant]
     Active Substance: CANDESARTAN
     Indication: BLOOD PRESSURE ABNORMAL
     Dosage: UNK
     Route: 065
  7. SPIRULINA                          /01514001/ [Concomitant]
     Active Substance: SPIRULINA
     Indication: PRODUCT USED FOR UNKNOWN INDICATION
     Dosage: UNK
     Route: 065
  8. QUETIAPIN-HORMOSAN 50 MG RETARDTABLETTEN [Suspect]
     Active Substance: QUETIAPINE FUMARATE
     Indication: NEUROLOGICAL SYMPTOM
     Dosage: 50 MG, QD (IN THE EVENING)
     Route: 048
  9. L-THYROXIN                         /00068001/ [Concomitant]
     Active Substance: LEVOTHYROXINE
     Indication: PRODUCT USED FOR UNKNOWN INDICATION
     Dosage: 100 UNK, UNK
     Route: 065
  10. CHLORELLA GROWTH FACTOR [Concomitant]
     Indication: PRODUCT USED FOR UNKNOWN INDICATION
     Dosage: UNK
     Route: 065

REACTIONS (9)
  - Red blood cell count increased [Unknown]
  - Thought blocking [Unknown]
  - Off label use [Unknown]
  - Heart rate increased [Unknown]
  - Incorrect dose administered [Unknown]
  - Heat illness [Unknown]
  - Histamine intolerance [Unknown]
  - Wrong technique in product usage process [Unknown]
  - Atrial fibrillation [Not Recovered/Not Resolved]
